FAERS Safety Report 7007562-9 (Version None)
Quarter: 2010Q3

REPORT INFORMATION
  Report Type: 
  Country: None (occurrence: None)
  Receive Date: 20100922
  Receipt Date: 20100913
  Transmission Date: 20110219
  Serious: Yes (Hospitalization)
  Sender: FDA-Public Use
  Company Number: DE-ASTRAZENECA-2010SE07543

PATIENT
  Age: 50 Year
  Sex: Male

DRUGS (15)
  1. SEROQUEL [Suspect]
     Route: 048
     Dates: start: 20091224, end: 20100104
  2. SEROQUEL [Suspect]
     Route: 048
     Dates: start: 20100106
  3. SEROQUEL [Suspect]
     Route: 048
     Dates: start: 20100107
  4. SEROQUEL [Suspect]
     Route: 048
     Dates: start: 20100108
  5. SEROQUEL [Suspect]
     Route: 048
     Dates: start: 20100109
  6. VALPROAT [Suspect]
     Route: 048
     Dates: start: 20091224, end: 20091228
  7. VALPROAT [Suspect]
     Route: 048
     Dates: start: 20091229, end: 20091230
  8. VALPROAT [Suspect]
     Route: 048
     Dates: start: 20091231, end: 20100107
  9. VALPROAT [Suspect]
     Route: 048
     Dates: start: 20100108
  10. VALPROAT [Suspect]
     Route: 048
     Dates: start: 20100109
  11. INVEGA [Suspect]
     Route: 048
     Dates: start: 20091224
  12. DIAZEPAM [Concomitant]
     Route: 048
     Dates: start: 20091225
  13. FLUNITRAZEPAM [Concomitant]
     Route: 048
     Dates: start: 20091225
  14. AMARYL [Concomitant]
     Route: 048
     Dates: start: 20091225
  15. ACTRAPHANE [Concomitant]
     Dosage: IU ACCORDING TO BLOOD SUGAR
     Route: 058

REACTIONS (1)
  - POLYDIPSIA [None]
